FAERS Safety Report 8258140-5 (Version None)
Quarter: 2012Q2

REPORT INFORMATION
  Report Type: 
  Country: None (occurrence: None)
  Receive Date: 20120404
  Receipt Date: 20120327
  Transmission Date: 20120825
  Serious: Yes (Hospitalization)
  Sender: FDA-Public Use
  Company Number: PHEH2011US06168

PATIENT
  Sex: Female

DRUGS (2)
  1. GLEEVEC [Suspect]
     Dosage: 400 MG QD
     Route: 048
  2. GLEEVEC [Suspect]
     Indication: CHRONIC MYELOID LEUKAEMIA
     Dosage: 400 MG, DAILY
     Route: 048
     Dates: start: 20110425

REACTIONS (10)
  - VERTIGO [None]
  - OEDEMA PERIPHERAL [None]
  - DYSPNOEA [None]
  - DIZZINESS [None]
  - PULMONARY OEDEMA [None]
  - GASTROINTESTINAL DISORDER [None]
  - GAIT DISTURBANCE [None]
  - EAR INFECTION [None]
  - SWELLING [None]
  - MALAISE [None]
